FAERS Safety Report 8305168-2 (Version None)
Quarter: 2012Q2

REPORT INFORMATION
  Report Type: 
  Country: None (occurrence: None)
  Receive Date: 20120418
  Receipt Date: 20120409
  Transmission Date: 20120825
  Serious: Yes (Hospitalization, Other)
  Sender: FDA-Public Use
  Company Number: DAV-AE-MTX-12-25

PATIENT
  Age: 75 Year
  Sex: Female

DRUGS (3)
  1. ENBREL [Suspect]
     Dosage: SUBCUTANEOUS
     Route: 058
     Dates: start: 20120101
  2. NEUTROGIN (LENOGRASTIM) [Concomitant]
  3. RHEUMATREX [Suspect]
     Indication: PRODUCT USED FOR UNKNOWN INDICATION
     Dates: start: 20090101, end: 20110701

REACTIONS (2)
  - PLATELET COUNT DECREASED [None]
  - LEUKOPENIA [None]
